FAERS Safety Report 4459152-X (Version None)
Quarter: 2004Q3

REPORT INFORMATION
  Report Type: 
  Country: None (occurrence: None)
  Receive Date: 20040927
  Receipt Date: 20040917
  Transmission Date: 20050211
  Serious: Yes (Hospitalization)
  Sender: FDA-Public Use
  Company Number: PHFR2004GB03539

PATIENT

DRUGS (1)
  1. GLEEVEC [Suspect]
     Indication: GASTROINTESTINAL STROMAL TUMOUR
     Dates: end: 20040917

REACTIONS (3)
  - BRONCHOPULMONARY ASPERGILLOSIS [None]
  - PNEUMONITIS [None]
  - PULMONARY FIBROSIS [None]
